FAERS Safety Report 14846968 (Version 1)
Quarter: 2018Q2

REPORT INFORMATION
  Report Type: Spontaneous
  Country: US (occurrence: US)
  Receive Date: 20180419
  Receipt Date: 20180419
  Transmission Date: 20180711
  Serious: Yes (Disabling)
  Sender: FDA-Public Use
  Company Number: None

PATIENT
  Age: 64 Year
  Sex: Female

DRUGS (1)
  1. OTEZLA [Suspect]
     Active Substance: APREMILAST
     Indication: PSORIASIS
     Route: 048
     Dates: start: 20160701, end: 20161127

REACTIONS (7)
  - Peripheral swelling [None]
  - Bedridden [None]
  - Weight increased [None]
  - Fluid retention [None]
  - Diarrhoea [None]
  - Abdominal distension [None]
  - Fatigue [None]

NARRATIVE: CASE EVENT DATE: 20160803
